FAERS Safety Report 5196866-0 (Version None)
Quarter: 2006Q4

REPORT INFORMATION
  Report Type: 
  Country: None (occurrence: None)
  Receive Date: 20061227
  Receipt Date: 20061212
  Transmission Date: 20070319
  Serious: Yes (Death, Other)
  Sender: FDA-Public Use
  Company Number: 2006US-04920

PATIENT
  Age: 53 Year
  Sex: Female

DRUGS (7)
  1. FENTANYL TRANSDERMAL SYSTEM [Suspect]
     Indication: METASTASES TO LIVER
     Dosage: 100 MCG/HR
  2. MORPHINE SULFATE [Suspect]
     Indication: METASTASES TO LIVER
  3. .. [Concomitant]
  4. .. [Concomitant]
  5. .. [Concomitant]
  6. .. [Concomitant]
  7. .. [Concomitant]

REACTIONS (1)
  - HYPERHIDROSIS [None]
